FAERS Safety Report 5649262-3 (Version None)
Quarter: 2008Q1

REPORT INFORMATION
  Report Type: 
  Country: None (occurrence: None)
  Receive Date: 20080131
  Receipt Date: 20071108
  Transmission Date: 20080703
  Serious: Yes (Other)
  Sender: FDA-Public Use
  Company Number: US200710004945

PATIENT
  Age: 55 Year
  Sex: Female

DRUGS (6)
  1. BYETTA [Suspect]
     Indication: TYPE 2 DIABETES MELLITUS
     Dosage: 5 UG, 2/D, SUBCUTANEOUS
     Route: 058
     Dates: start: 20070601, end: 20070701
  2. LANTUS [Concomitant]
  3. BENICAR [Concomitant]
  4. ASPIRIN [Concomitant]
  5. CALCIUM (CALCIUM) [Concomitant]
  6. MULTIVITAMIN [Concomitant]

REACTIONS (1)
  - DIZZINESS [None]
